FAERS Safety Report 21990458 (Version 2)
Quarter: 2025Q2

REPORT INFORMATION
  Report Type: Spontaneous
  Country: US (occurrence: US)
  Receive Date: 20230214
  Receipt Date: 20250506
  Transmission Date: 20250716
  Serious: Yes (Other)
  Sender: PFIZER
  Company Number: US-PFIZER INC-202300064992

PATIENT
  Age: 59 Year
  Sex: Female

DRUGS (8)
  1. XELJANZ XR [Suspect]
     Active Substance: TOFACITINIB CITRATE
     Indication: Rheumatoid arthritis
     Dosage: 11 MG, 1X/DAY
     Route: 048
     Dates: start: 2022
  2. XELJANZ XR [Suspect]
     Active Substance: TOFACITINIB CITRATE
     Dosage: 11 MG, 1X/DAY
     Route: 048
     Dates: start: 202202
  3. METOPROLOL [Concomitant]
     Active Substance: METOPROLOL
  4. IBUPROFEN [Concomitant]
     Active Substance: IBUPROFEN
  5. GABAPENTIN [Concomitant]
     Active Substance: GABAPENTIN
  6. TOZINAMERAN [Concomitant]
     Active Substance: TOZINAMERAN
  7. INSULIN ASPART [Concomitant]
     Active Substance: INSULIN ASPART
  8. METOPROLOL SUCCINATE [Concomitant]
     Active Substance: METOPROLOL SUCCINATE
     Indication: Rheumatoid arthritis

REACTIONS (5)
  - Cerebrovascular accident [Recovered/Resolved]
  - Product dose omission issue [Unknown]
  - Arthralgia [Unknown]
  - Gait disturbance [Not Recovered/Not Resolved]
  - Influenza [Recovered/Resolved]

NARRATIVE: CASE EVENT DATE: 20230201
